FAERS Safety Report 22242154 (Version 6)
Quarter: 2025Q3

REPORT INFORMATION
  Report Type: Spontaneous
  Country: US (occurrence: US)
  Receive Date: 20230421
  Receipt Date: 20250827
  Transmission Date: 20251020
  Serious: Yes (Death, Hospitalization, Other)
  Sender: MERCK SHARP & DOHME LLC
  Company Number: US-009507513-2304USA007021

PATIENT
  Sex: Male

DRUGS (10)
  1. KEYTRUDA [Suspect]
     Active Substance: PEMBROLIZUMAB
     Indication: Bladder cancer
     Dosage: DOSE DESCRIPTION : UNK, Q3W
     Route: 042
     Dates: start: 20230224, end: 20230224
  2. KEYTRUDA [Suspect]
     Active Substance: PEMBROLIZUMAB
     Indication: Bladder cancer
     Dosage: DOSE DESCRIPTION : UNK, Q3W
     Route: 042
     Dates: start: 20230320, end: 20230320
  3. INSULIN HUMAN [Concomitant]
     Active Substance: INSULIN HUMAN
  4. HUMALOG [Concomitant]
     Active Substance: INSULIN LISPRO
  5. OMEPRAZOLE [Concomitant]
     Active Substance: OMEPRAZOLE
  6. DILTIZEM [Concomitant]
  7. TAMSULOSIN [Concomitant]
     Active Substance: TAMSULOSIN
  8. LEVOTHYROXINE [Concomitant]
     Active Substance: LEVOTHYROXINE
  9. LISINOPRIL [Concomitant]
     Active Substance: LISINOPRIL
  10. INSULIN NOS [Concomitant]
     Active Substance: INSULIN NOS
     Route: 042

REACTIONS (13)
  - Toxicity to various agents [Fatal]
  - Pneumonia [Fatal]
  - Hepatotoxicity [Not Recovered/Not Resolved]
  - Thyroid hormones increased [Unknown]
  - Muscular weakness [Unknown]
  - Pneumothorax [Unknown]
  - Bladder cancer recurrent [Unknown]
  - Blood glucose increased [Unknown]
  - Inappropriate schedule of product administration [Unknown]
  - Pneumonia aspiration [Not Recovered/Not Resolved]
  - Eating disorder [Unknown]
  - Laboratory test abnormal [Not Recovered/Not Resolved]
  - Renal disorder [Not Recovered/Not Resolved]

NARRATIVE: CASE EVENT DATE: 20230101
